FAERS Safety Report 6426622-4 (Version None)
Quarter: 2009Q4

REPORT INFORMATION
  Report Type: 
  Country: None (occurrence: None)
  Receive Date: 20091030
  Receipt Date: 20090510
  Transmission Date: 20100525
  Serious: Yes (Hospitalization, Other)
  Sender: FDA-Public Use
  Company Number: CL-59-2009

PATIENT
  Age: 60 Year
  Sex: Male

DRUGS (4)
  1. METRONIDAZOLE [Suspect]
     Indication: HEPATIC ENCEPHALOPATHY
     Dosage: 1.5 G PER DAY; FEW DAYS
  2. SPIRONOLACTONE [Concomitant]
  3. LACTULOSE [Concomitant]
  4. VITAMIN K TAB [Concomitant]

REACTIONS (5)
  - ATAXIA [None]
  - CHOREA [None]
  - CONDITION AGGRAVATED [None]
  - DYSARTHRIA [None]
  - MYOCLONUS [None]
